FAERS Safety Report 8317599-5 (Version None)
Quarter: 2012Q2

REPORT INFORMATION
  Report Type: 
  Country: None (occurrence: None)
  Receive Date: 20120427
  Receipt Date: 20110719
  Transmission Date: 20120825
  Serious: No
  Sender: FDA-Public Use
  Company Number: US-GLAXOSMITHKLINE-A0937323A

PATIENT
  Age: 24 Year
  Sex: Female

DRUGS (2)
  1. NO CONCURRENT MEDICATION [Concomitant]
  2. ZOFRAN [Suspect]
     Indication: PROPHYLAXIS OF NAUSEA AND VOMITING
     Route: 048
     Dates: start: 20110601, end: 20110712

REACTIONS (4)
  - MUSCULAR WEAKNESS [None]
  - DIZZINESS [None]
  - ABASIA [None]
  - MATERNAL EXPOSURE DURING PREGNANCY [None]
